FAERS Safety Report 9727334 (Version 3)
Quarter: 2014Q2

REPORT INFORMATION
  Report Type: Spontaneous
  Country: US (occurrence: US)
  Receive Date: 20131203
  Receipt Date: 20140417
  Transmission Date: 20141212
  Serious: Yes (Death, Hospitalization, Other)
  Sender: FDA-Public Use
  Company Number: US-BAYER-2013-132120

PATIENT
  Age: 69 Year
  Sex: Male
  Weight: 90 kg

DRUGS (10)
  1. XARELTO [Suspect]
     Indication: PRODUCT USED FOR UNKNOWN INDICATION
     Dosage: 20 MG, QD
     Route: 048
     Dates: end: 20131018
  2. ASPIRIN [Suspect]
     Dosage: UNK
     Route: 065
  3. ALBUTEROL [Concomitant]
     Dosage: UNK
     Route: 065
  4. LASIX [Concomitant]
     Dosage: UNK
     Route: 065
  5. POTASSIUM [Concomitant]
     Dosage: UNK
     Route: 065
  6. ATENOLOL [Concomitant]
     Dosage: UNK
     Route: 065
  7. PEPCID [Concomitant]
     Dosage: UNK
     Route: 065
  8. AMIODARONE [Concomitant]
     Dosage: UNK
     Route: 065
  9. METHOTREXATE [Concomitant]
     Dosage: UNK
     Route: 065
  10. ACETAMINOPHEN [Concomitant]
     Dosage: UNK
     Route: 065

REACTIONS (2)
  - Acute hepatic failure [Fatal]
  - Post procedural haemorrhage [Not Recovered/Not Resolved]
